FAERS Safety Report 4821329-9 (Version None)
Quarter: 2005Q4

REPORT INFORMATION
  Report Type: 
  Country: None (occurrence: None)
  Receive Date: 20051107
  Receipt Date: 20050824
  Transmission Date: 20060501
  Serious: No
  Sender: FDA-Public Use
  Company Number: US-GLAXOSMITHKLINE-A0571657A

PATIENT
  Sex: Female

DRUGS (6)
  1. AVANDAMET [Suspect]
     Dosage: 2TAB IN THE MORNING
     Route: 048
     Dates: end: 20050101
  2. TOPROL-XL [Concomitant]
  3. MICARDIS [Concomitant]
  4. NORVASC [Concomitant]
  5. CENTRUM SILVER [Concomitant]
  6. ASPIRIN [Concomitant]

REACTIONS (1)
  - OEDEMA PERIPHERAL [None]
